FAERS Safety Report 20371718 (Version 1)
Quarter: 2022Q1

REPORT INFORMATION
  Report Type: Spontaneous
  Country: US (occurrence: None)
  Receive Date: 20220124
  Receipt Date: 20220124
  Transmission Date: 20220423
  Serious: No
  Sender: FDA-Public Use
  Company Number: None

PATIENT

DRUGS (1)
  1. CLOZAPINE [Suspect]
     Active Substance: CLOZAPINE

REACTIONS (6)
  - Unresponsive to stimuli [None]
  - Cardiac arrest [None]
  - Wrong technique in product usage process [None]
  - Near death experience [None]
  - Transcription medication error [None]
  - Product prescribing error [None]
